FAERS Safety Report 4775927-1 (Version None)
Quarter: 2005Q3

REPORT INFORMATION
  Report Type: 
  Country: None (occurrence: None)
  Receive Date: 20050914
  Receipt Date: 20050317
  Transmission Date: 20060218
  Serious: Yes (Hospitalization)
  Sender: FDA-Public Use
  Company Number: 163-20785-05030532

PATIENT
  Age: 62 Year
  Sex: Male
  Weight: 77 kg

DRUGS (38)
  1. THALOMID [Suspect]
     Indication: MULTIPLE MYELOMA
     Dosage: ORAL; ORAL; 100 MG, DAILY, ORAL; 100 MG, DAILY, ORAL
     Route: 048
     Dates: start: 20041220, end: 20050210
  2. THALOMID [Suspect]
     Indication: MULTIPLE MYELOMA
     Dosage: ORAL; ORAL; 100 MG, DAILY, ORAL; 100 MG, DAILY, ORAL
     Route: 048
     Dates: start: 20050411, end: 20050501
  3. THALOMID [Suspect]
     Indication: MULTIPLE MYELOMA
     Dosage: ORAL; ORAL; 100 MG, DAILY, ORAL; 100 MG, DAILY, ORAL
     Route: 048
     Dates: start: 20040918
  4. THALOMID [Suspect]
     Indication: MULTIPLE MYELOMA
     Dosage: ORAL; ORAL; 100 MG, DAILY, ORAL; 100 MG, DAILY, ORAL
     Route: 048
     Dates: start: 20041020
  5. MELPHALAN (MELPHALAN) (UNKNOWN) [Suspect]
     Indication: MULTIPLE MYELOMA
     Dosage: 200 MG/M2, DAILY, INTRAVENOUS; 200 MG/M2, DAILY, INTRAVENOUS
     Route: 042
     Dates: start: 20041123, end: 20041123
  6. MELPHALAN (MELPHALAN) (UNKNOWN) [Suspect]
     Indication: MULTIPLE MYELOMA
     Dosage: 200 MG/M2, DAILY, INTRAVENOUS; 200 MG/M2, DAILY, INTRAVENOUS
     Route: 042
     Dates: start: 20050217, end: 20050217
  7. DEXAMETHASONE [Suspect]
     Indication: MULTIPLE MYELOMA
     Dosage: 20 MG, DAILY, ORAL
     Dates: start: 20050411, end: 20050414
  8. DEXAMETHASONE [Suspect]
     Indication: MULTIPLE MYELOMA
     Dosage: 20 MG, DAILY, ORAL
     Dates: start: 20040918
  9. DEXAMETHASONE [Suspect]
     Indication: MULTIPLE MYELOMA
     Dosage: 20 MG, DAILY, ORAL
     Dates: start: 20041020
  10. BORTEZOMIB (BORTEZOMIB) (UNKNOWN) [Suspect]
     Indication: MULTIPLE MYELOMA
     Dates: start: 20040918
  11. BORTEZOMIB (BORTEZOMIB) (UNKNOWN) [Suspect]
     Indication: MULTIPLE MYELOMA
     Dates: start: 20041020
  12. CISPLATIN [Suspect]
     Indication: MULTIPLE MYELOMA
     Dates: start: 20040918
  13. CISPLATIN [Suspect]
     Indication: MULTIPLE MYELOMA
     Dates: start: 20041020
  14. ADRIAMYCIN PFS [Suspect]
     Indication: MULTIPLE MYELOMA
     Dates: start: 20040918
  15. ADRIAMYCIN PFS [Suspect]
     Indication: MULTIPLE MYELOMA
     Dates: start: 20041020
  16. CYCLOPHOSPHAMIDE [Suspect]
     Indication: MULTIPLE MYELOMA
     Dates: start: 20040918
  17. CYCLOPHOSPHAMIDE [Suspect]
     Indication: MULTIPLE MYELOMA
     Dates: start: 20041020
  18. ETOPOSIDE [Suspect]
     Indication: MULTIPLE MYELOMA
     Dates: start: 20040918
  19. ETOPOSIDE [Suspect]
     Indication: MULTIPLE MYELOMA
     Dates: start: 20041020
  20. INVANZ (ERTAPENEM SODIUM) (UNKNOWN) [Concomitant]
  21. MEDROL DOSEPACK (METHYLPREDNISOLONE) (UNKNOWN) [Concomitant]
  22. VERAPAMIL (VERAPAMIL) (UNKNOWN) [Concomitant]
  23. LISINOPRIL (LISINOPRIL) (UNKNOWN) [Concomitant]
  24. ACYCLOVIR [Concomitant]
  25. IMODIUM [Concomitant]
  26. MULTI-VITAMINS [Concomitant]
  27. FOLIC ACID [Concomitant]
  28. HEPARIN FLUSH (HEPARIN SODIUM) [Concomitant]
  29. PROTONIX [Concomitant]
  30. ZOLOFT [Concomitant]
  31. LOVENOX [Concomitant]
  32. FLUCONAZOLE [Concomitant]
  33. AMBIEN [Concomitant]
  34. LORAZEPAM [Concomitant]
  35. BACLOFEN [Concomitant]
  36. TEQUIN [Concomitant]
  37. RANITIDINE [Concomitant]
  38. PEPCID [Concomitant]

REACTIONS (18)
  - ASTHENIA [None]
  - BACTERAEMIA [None]
  - BLOOD CREATININE INCREASED [None]
  - BLOOD LACTATE DEHYDROGENASE INCREASED [None]
  - COLITIS [None]
  - DIARRHOEA [None]
  - DIZZINESS [None]
  - ENTEROCOCCAL INFECTION [None]
  - FEBRILE NEUTROPENIA [None]
  - FULL BLOOD COUNT ABNORMAL [None]
  - HAEMATOCRIT DECREASED [None]
  - HAEMOGLOBIN DECREASED [None]
  - LIVER FUNCTION TEST ABNORMAL [None]
  - MUCOSAL INFLAMMATION [None]
  - PLATELET COUNT DECREASED [None]
  - PNEUMONIA [None]
  - RENAL FAILURE [None]
  - TACHYPNOEA [None]
